FAERS Safety Report 18473798 (Version 1)
Quarter: 2020Q4

REPORT INFORMATION
  Report Type: Spontaneous
  Country: US (occurrence: US)
  Receive Date: 20201106
  Receipt Date: 20201106
  Transmission Date: 20210114
  Serious: Yes (Hospitalization, Other)
  Sender: FDA-Public Use
  Company Number: US-MSNLABS-2020MSNLIT00402

PATIENT
  Age: 19 Year
  Sex: Male

DRUGS (1)
  1. MOXIFLOXACIN HYDROCHLORIDE TABLETS 400 MG [Suspect]
     Active Substance: MOXIFLOXACIN HYDROCHLORIDE
     Indication: PRODUCT USED FOR UNKNOWN INDICATION
     Dosage: UNKNOWN
     Route: 065

REACTIONS (3)
  - Pneumonia streptococcal [Recovering/Resolving]
  - Empyema [Recovering/Resolving]
  - Drug ineffective [Unknown]
